FAERS Safety Report 7585414-3 (Version None)
Quarter: 2011Q2

REPORT INFORMATION
  Report Type: 
  Country: None (occurrence: None)
  Receive Date: 20110628
  Receipt Date: 20110628
  Transmission Date: 20111010
  Serious: Yes (Other)
  Sender: FDA-Public Use
  Company Number: None

PATIENT
  Age: 66 Year
  Sex: Female
  Weight: 73.0291 kg

DRUGS (4)
  1. SIMVASTATIN [Suspect]
     Indication: LOW DENSITY LIPOPROTEIN INCREASED
     Dosage: 1 DAILY PO
     Route: 048
     Dates: start: 20110104, end: 20110315
  2. SIMVASTATIN [Suspect]
     Indication: BLOOD TRIGLYCERIDES INCREASED
     Dosage: 1 DAILY PO
     Route: 048
     Dates: start: 20110104, end: 20110315
  3. SIMVASTATIN [Suspect]
     Indication: LOW DENSITY LIPOPROTEIN INCREASED
     Dosage: 1 DAILY PO
     Route: 048
     Dates: start: 20110318, end: 20110625
  4. SIMVASTATIN [Suspect]
     Indication: BLOOD TRIGLYCERIDES INCREASED
     Dosage: 1 DAILY PO
     Route: 048
     Dates: start: 20110318, end: 20110625

REACTIONS (2)
  - ARTHRALGIA [None]
  - MYALGIA [None]
